FAERS Safety Report 6173136-5 (Version None)
Quarter: 2009Q2

REPORT INFORMATION
  Report Type: 
  Country: None (occurrence: None)
  Receive Date: 20090430
  Receipt Date: 20090421
  Transmission Date: 20091009
  Serious: Yes (Other)
  Sender: FDA-Public Use
  Company Number: FI-PFIZER INC-2009202869

PATIENT

DRUGS (8)
  1. AMLODIPINE BESYLATE [Suspect]
     Route: 048
  2. DIOVAN COMP [Concomitant]
     Dosage: UNK
     Route: 048
  3. SYMBICORT [Concomitant]
  4. SELEXID [Concomitant]
     Dosage: 200 MG, 1X/DAY
     Route: 048
  5. KALCIPOS-D [Concomitant]
     Route: 048
  6. ACETAMINOPHEN [Concomitant]
     Dosage: 1330 MG, 2X/DAY
     Route: 048
  7. LYRICA [Concomitant]
     Dosage: 75 MG, 2X/DAY
     Route: 048
  8. ZOLPIDEM [Concomitant]
     Route: 048

REACTIONS (2)
  - CONDITION AGGRAVATED [None]
  - NEURALGIA [None]
